FAERS Safety Report 10975412 (Version 1)
Quarter: 2015Q2

REPORT INFORMATION
  Report Type: Spontaneous
  Country: US (occurrence: US)
  Receive Date: 20150401
  Receipt Date: 20150401
  Transmission Date: 20150821
  Serious: Yes (Other)
  Sender: FDA-Public Use
  Company Number: US-GLAXOSMITHKLINE-US2015042082

PATIENT
  Age: 67 Year
  Sex: Female

DRUGS (5)
  1. ADVAIR HFA [Suspect]
     Active Substance: FLUTICASONE PROPIONATE\SALMETEROL XINAFOATE
     Indication: MULTIPLE ALLERGIES
     Dosage: 115/21
     Dates: start: 20150101, end: 201502
  2. LISINOPRIL. [Concomitant]
     Active Substance: LISINOPRIL
  3. ADVAIR HFA [Suspect]
     Active Substance: FLUTICASONE PROPIONATE\SALMETEROL XINAFOATE
     Indication: ASTHMA
     Dosage: 2 PUFF(S), BID
     Route: 055
     Dates: start: 20130201
  4. FUROSEMIDE. [Concomitant]
     Active Substance: FUROSEMIDE
  5. SINGULAIR [Concomitant]
     Active Substance: MONTELUKAST SODIUM

REACTIONS (5)
  - Lung infection [Recovered/Resolved]
  - Sinusitis [Not Recovered/Not Resolved]
  - Drug dispensing error [Recovered/Resolved]
  - Rhinorrhoea [Recovered/Resolved]
  - Incorrect dosage administered [Recovered/Resolved]

NARRATIVE: CASE EVENT DATE: 20150208
